FAERS Safety Report 6182551-5 (Version None)
Quarter: 2009Q2

REPORT INFORMATION
  Report Type: 
  Country: None (occurrence: None)
  Receive Date: 20090507
  Receipt Date: 20090427
  Transmission Date: 20091009
  Serious: Yes (Hospitalization, Other)
  Sender: FDA-Public Use
  Company Number: GR-PFIZER INC-2009163210

PATIENT

DRUGS (7)
  1. AXITINIB [Suspect]
     Indication: METASTATIC RENAL CELL CARCINOMA
     Dosage: 3 MG, 2X/DAY
     Route: 048
     Dates: start: 20090118
  2. AMLODIPINE BESYLATE [Suspect]
     Dosage: UNK
     Route: 048
     Dates: start: 20081229
  3. IRBESARTAN [Suspect]
     Dosage: UNK
     Route: 048
     Dates: start: 20081229
  4. NEBIVOLOL [Suspect]
     Dosage: 5 MG, UNK
     Route: 048
     Dates: start: 20081229, end: 20090128
  5. FUROSEMIDE [Concomitant]
     Dosage: UNK
     Route: 048
     Dates: start: 20090204
  6. GLIMEPIRIDE [Concomitant]
     Dosage: UNK
     Route: 048
  7. HYDROCHLOROTHIAZIDE [Concomitant]
     Dosage: UNK
     Route: 048
     Dates: start: 20081229, end: 20090128

REACTIONS (4)
  - BRADYCARDIA [None]
  - FATIGUE [None]
  - HYPERKALAEMIA [None]
  - HYPOTHYROIDISM [None]
